FAERS Safety Report 16793111 (Version 17)
Quarter: 2022Q3

REPORT INFORMATION
  Report Type: Report from Study
  Country: JP (occurrence: JP)
  Receive Date: 20190911
  Receipt Date: 20220819
  Transmission Date: 20221027
  Serious: Yes (Hospitalization)
  Sender: FDA-Public Use
  Company Number: JP-ABBVIE-19K-087-2918666-00

PATIENT
  Age: 77 Year
  Sex: Female
  Weight: 41 kg

DRUGS (14)
  1. CARBIDOPA\LEVODOPA [Suspect]
     Active Substance: CARBIDOPA\LEVODOPA
     Indication: Parkinson^s disease
     Dosage: MD: 6.5 ML, CD: 2.1 ML/HR X 16 HRS,ED: 1 ML/UNIT X 3
     Route: 050
     Dates: start: 20190725
  2. CARBIDOPA\LEVODOPA [Suspect]
     Active Substance: CARBIDOPA\LEVODOPA
  3. CARBIDOPA, LEVODOPA AND ENTACAPONE [Concomitant]
     Active Substance: CARBIDOPA\ENTACAPONE\LEVODOPA
     Indication: Parkinson^s disease
     Route: 048
  4. ISTRADEFYLLINE [Concomitant]
     Active Substance: ISTRADEFYLLINE
     Indication: Parkinson^s disease
     Route: 048
  5. ROTIGOTINE [Concomitant]
     Active Substance: ROTIGOTINE
     Indication: Parkinson^s disease
     Route: 062
  6. TRISODIUM CITRATE DIHYDRATE [Concomitant]
     Active Substance: TRISODIUM CITRATE DIHYDRATE
     Indication: Product used for unknown indication
     Route: 048
  7. LANSOPRAZOLE [Concomitant]
     Active Substance: LANSOPRAZOLE
     Indication: Product used for unknown indication
     Route: 048
  8. SOLIFENACIN SUCCINATE [Concomitant]
     Active Substance: SOLIFENACIN SUCCINATE
     Indication: Product used for unknown indication
     Dosage: 5 UNKNOWN
     Route: 048
  9. CHLORPHENIRAMINE MALEATE [Concomitant]
     Active Substance: CHLORPHENIRAMINE MALEATE
     Indication: Product used for unknown indication
     Dosage: D-CHLORPHENIRAMINE MALEATE
     Route: 048
  10. EPINASTINE HYDROCHLORIDE [Concomitant]
     Active Substance: EPINASTINE HYDROCHLORIDE
     Indication: Product used for unknown indication
     Route: 048
  11. ELDECALCITOL [Concomitant]
     Active Substance: ELDECALCITOL
     Indication: Product used for unknown indication
     Route: 048
  12. DOMPERIDONE [Concomitant]
     Active Substance: DOMPERIDONE
     Indication: Product used for unknown indication
     Route: 048
  13. MIROGABALIN BESILATE [Concomitant]
     Indication: Product used for unknown indication
     Route: 048
  14. ELOBIXIBAT [Concomitant]
     Active Substance: ELOBIXIBAT
     Indication: Product used for unknown indication
     Dosage: ELOBIXIBAT HYDRATE
     Route: 048

REACTIONS (21)
  - Urticaria [Recovered/Resolved]
  - Back pain [Recovered/Resolved]
  - Injury associated with device [Recovered/Resolved]
  - Medical device site pain [Unknown]
  - Malaise [Unknown]
  - Ear pain [Unknown]
  - Pollakiuria [Not Recovered/Not Resolved]
  - Cough [Unknown]
  - Back pain [Unknown]
  - Urinary incontinence [Unknown]
  - On and off phenomenon [Unknown]
  - Stoma site erythema [Unknown]
  - Stoma site discharge [Recovering/Resolving]
  - Stoma site hypergranulation [Recovering/Resolving]
  - Stoma site pain [Recovering/Resolving]
  - Device issue [Unknown]
  - Stoma site abscess [Unknown]
  - Device placement issue [Unknown]
  - Malaise [Recovered/Resolved]
  - Malaise [Unknown]
  - Stoma site pain [Unknown]

NARRATIVE: CASE EVENT DATE: 20190101
